FAERS Safety Report 19250273 (Version 3)
Quarter: 2021Q3

REPORT INFORMATION
  Report Type: Spontaneous
  Country: US (occurrence: US)
  Receive Date: 20210513
  Receipt Date: 20210720
  Transmission Date: 20211014
  Serious: Yes (Life-Threatening, Hospitalization, Disabling, Other)
  Sender: FDA-Public Use
  Company Number: US-CELLTRION INC.-2021US003647

PATIENT

DRUGS (6)
  1. INFLECTRA [Suspect]
     Active Substance: INFLIXIMAB-DYYB
     Indication: SARCOIDOSIS
     Dosage: 5 MG/KG (500MG) INDUCTION WEEK 0,2,6
     Route: 042
     Dates: start: 20200418, end: 20200418
  2. INFLECTRA [Suspect]
     Active Substance: INFLIXIMAB-DYYB
     Indication: CUTANEOUS SARCOIDOSIS
     Dosage: 5 MG/KG (500MG) INDUCTION WEEK 0,2,6
     Route: 042
     Dates: start: 20200308
  3. FOLIC ACID. [Concomitant]
     Active Substance: FOLIC ACID
     Dosage: UNK
  4. IMURAN [Concomitant]
     Active Substance: AZATHIOPRINE
     Indication: SARCOIDOSIS
     Dosage: 75 MG/DAY
     Dates: start: 201904
  5. INFLECTRA [Suspect]
     Active Substance: INFLIXIMAB-DYYB
     Indication: VASCULITIS
     Dosage: 5 MG/KG (500MG) INDUCTION WEEK 0,2,6
     Route: 042
     Dates: start: 20200323
  6. MTX [METHOTREXATE] [Concomitant]
     Active Substance: METHOTREXATE SODIUM
     Dosage: UNK

REACTIONS (5)
  - Inappropriate schedule of product administration [Unknown]
  - Off label use [Unknown]
  - Hepatic failure [Recovered/Resolved]
  - Autoimmune hepatitis [Unknown]
  - Liver function test increased [Recovering/Resolving]

NARRATIVE: CASE EVENT DATE: 20200418
